FAERS Safety Report 17563441 (Version 3)
Quarter: 2020Q3

REPORT INFORMATION
  Report Type: Spontaneous
  Country: DE (occurrence: DE)
  Receive Date: 20200320
  Receipt Date: 20200706
  Transmission Date: 20201102
  Serious: Yes (Other)
  Sender: FDA-Public Use
  Company Number: DE-PFIZER INC-2020107762

PATIENT
  Age: 32 Year
  Sex: Female
  Weight: 110 kg

DRUGS (2)
  1. CYTOTEC [Suspect]
     Active Substance: MISOPROSTOL
     Indication: AMNIOTIC FLUID VOLUME DECREASED
     Dosage: UNK, 1X/DAY
     Route: 048
     Dates: start: 20140531, end: 20140601
  2. CYTOTEC [Suspect]
     Active Substance: MISOPROSTOL
     Indication: LABOUR INDUCTION

REACTIONS (9)
  - Uterine tachysystole [Recovered/Resolved]
  - Vulvovaginal injury [Recovered/Resolved]
  - Perineal injury [Recovered/Resolved]
  - Syncope [Recovered/Resolved]
  - Dizziness [Recovered/Resolved]
  - Vomiting [Recovered/Resolved]
  - Product use in unapproved indication [Unknown]
  - Post-traumatic stress disorder [Recovering/Resolving]
  - Off label use [Unknown]

NARRATIVE: CASE EVENT DATE: 20140531
